FAERS Safety Report 6882479-9 (Version None)
Quarter: 2010Q3

REPORT INFORMATION
  Report Type: 
  Country: None (occurrence: None)
  Receive Date: 20100729
  Receipt Date: 20100716
  Transmission Date: 20110219
  Serious: Yes (Hospitalization)
  Sender: FDA-Public Use
  Company Number: HR-BAYER-201030848GPV

PATIENT
  Age: 52 Year
  Sex: Male

DRUGS (2)
  1. ALEMTUZUMAB [Suspect]
     Indication: MULTIPLE SCLEROSIS RELAPSE
     Route: 042
     Dates: start: 20090112, end: 20090116
  2. ALEMTUZUMAB [Suspect]
     Route: 042
     Dates: start: 20100112, end: 20100114

REACTIONS (1)
  - MULTIPLE SCLEROSIS RELAPSE [None]
